FAERS Safety Report 6558818-5 (Version None)
Quarter: 2010Q1

REPORT INFORMATION
  Report Type: 
  Country: None (occurrence: None)
  Receive Date: 20100129
  Receipt Date: 20100119
  Transmission Date: 20100710
  Serious: Yes (Hospitalization, Other)
  Sender: FDA-Public Use
  Company Number: PHEH2009US15066

PATIENT
  Sex: Female

DRUGS (3)
  1. EXJADE [Suspect]
     Indication: APLASTIC ANAEMIA
     Dosage: 1250 MG (500/250), DAILY
     Route: 048
     Dates: start: 20091022, end: 20091103
  2. CYCLOSPORINE [Suspect]
  3. ENALAPRIL MALEATE [Suspect]

REACTIONS (4)
  - DIARRHOEA [None]
  - KIDNEY INFECTION [None]
  - NAUSEA [None]
  - RENAL FAILURE [None]
